FAERS Safety Report 7392181-5 (Version None)
Quarter: 2011Q2

REPORT INFORMATION
  Report Type: 
  Country: None (occurrence: None)
  Receive Date: 20110404
  Receipt Date: 20110328
  Transmission Date: 20111010
  Serious: Yes (Hospitalization)
  Sender: FDA-Public Use
  Company Number: B0702425A

PATIENT
  Sex: Male

DRUGS (4)
  1. PAXIL [Suspect]
     Indication: DEPRESSION
     Dosage: 20MG PER DAY
     Route: 048
     Dates: start: 20101224, end: 20110128
  2. DESYREL [Suspect]
     Indication: SLEEP DISORDER
     Dosage: 50MG PER DAY
     Route: 048
     Dates: start: 20100224, end: 20110125
  3. SEROQUEL [Suspect]
     Indication: SLEEP DISORDER
     Dosage: 25MG PER DAY
     Route: 048
     Dates: start: 20110107, end: 20110121
  4. DEPAS [Suspect]
     Indication: ANXIETY
     Dosage: 225MG PER DAY
     Route: 048
     Dates: start: 20100124, end: 20110129

REACTIONS (2)
  - RHABDOMYOLYSIS [None]
  - GRAND MAL CONVULSION [None]
